FAERS Safety Report 12411654 (Version 1)
Quarter: 2016Q2

REPORT INFORMATION
  Report Type: Spontaneous
  Country: US (occurrence: None)
  Receive Date: 20160526
  Receipt Date: 20160526
  Transmission Date: 20160815
  Serious: Yes (Hospitalization)
  Sender: FDA-Public Use
  Company Number: None

PATIENT
  Age: 56 Year
  Sex: Female
  Weight: 95.3 kg

DRUGS (26)
  1. VIEKIRA PAK [Suspect]
     Active Substance: DASABUVIR\OMBITASVIR\PARITAPREVIR\RITONAVIR
     Indication: HEPATITIS C VIRUS TEST POSITIVE
     Dosage: 12.5/75/50/250 MG DAILY PO
     Route: 048
     Dates: start: 20160112, end: 20160507
  2. TRAMADOL (ULTRAM) [Concomitant]
  3. LACTULOSE (CHRONULAC) [Concomitant]
  4. POLYETHYLENE GLYCOL (GLYCOLAX/MIRALAX) [Concomitant]
  5. LASIX [Concomitant]
     Active Substance: FUROSEMIDE
  6. HYDROXYZINE (ATARAX/VISTARIL) [Concomitant]
  7. CEFTRIAXONE (ROCEPHINE) [Concomitant]
  8. ZOFRAN [Concomitant]
     Active Substance: ONDANSETRON HYDROCHLORIDE
  9. ALBUTEROL (PROVENTIL) [Concomitant]
  10. COMBIVENT RESPIMAT [Concomitant]
     Active Substance: ALBUTEROL SULFATE\IPRATROPIUM BROMIDE
  11. SODIUM CHLORIDE-SODIUM BICARB (CLASSIC NETI POT SINUS WASH) [Concomitant]
  12. SODIUM CHLORIDE. [Concomitant]
     Active Substance: SODIUM CHLORIDE
  13. LACTULOSE (CHRONULAC) [Concomitant]
  14. OMBITAS-PARITAPRE-RITONA-DASAB [Concomitant]
  15. SPIRIVA [Concomitant]
     Active Substance: TIOTROPIUM BROMIDE MONOHYDRATE
  16. POTASSIUM CHLORIDE. [Concomitant]
     Active Substance: POTASSIUM CHLORIDE
  17. SODIUM CHLORIDE. [Concomitant]
     Active Substance: SODIUM CHLORIDE
  18. RANITIDINE (ZANTAC) [Concomitant]
  19. TRAZODONE (DESYREL) [Concomitant]
  20. PANTOPRAZOLE (PROTONIX) [Concomitant]
  21. VIEKIRA PAK [Suspect]
     Active Substance: DASABUVIR\OMBITASVIR\PARITAPREVIR\RITONAVIR
     Indication: HEPATIC CIRRHOSIS
     Dosage: 12.5/75/50/250 MG DAILY PO
     Route: 048
     Dates: start: 20160112, end: 20160507
  22. PROAIR HFA [Concomitant]
     Active Substance: ALBUTEROL SULFATE
  23. PROPRANOLOL (INDERAL) [Concomitant]
  24. MOVIPREP [Concomitant]
     Active Substance: ASCORBIC ACID\POLYETHYLENE GLYCOL 3350\POTASSIUM CHLORIDE\SODIUM ASCORBATE\SODIUM CHLORIDE\SODIUM SULFATE
  25. FLUCONAZOLE (DIFLUCAN) [Concomitant]
  26. FLONASE [Concomitant]
     Active Substance: FLUTICASONE PROPIONATE

REACTIONS (6)
  - Ammonia [None]
  - Asthenia [None]
  - Blood albumin decreased [None]
  - Jaundice [None]
  - Blood bilirubin increased [None]
  - Confusional state [None]

NARRATIVE: CASE EVENT DATE: 20160507
